FAERS Safety Report 13194495 (Version 1)
Quarter: 2017Q1

REPORT INFORMATION
  Report Type: Spontaneous
  Country: US (occurrence: US)
  Receive Date: 20170207
  Receipt Date: 20170207
  Transmission Date: 20170428
  Serious: Yes (Other)
  Sender: FDA-Public Use
  Company Number: US-JAZZ-2016-US-003258

PATIENT
  Age: 58 Year
  Sex: Male

DRUGS (1)
  1. PRIALT [Suspect]
     Active Substance: ZICONOTIDE ACETATE
     Dosage: UNK ?G, QH
     Route: 037
     Dates: start: 201511

REACTIONS (3)
  - Mental status changes [Unknown]
  - Hostility [Unknown]
  - Agitation [Unknown]

NARRATIVE: CASE EVENT DATE: 20160219
